FAERS Safety Report 7707668-2 (Version None)
Quarter: 2011Q3

REPORT INFORMATION
  Report Type: 
  Country: None (occurrence: None)
  Receive Date: 20110824
  Receipt Date: 20110817
  Transmission Date: 20111222
  Serious: Yes (Other)
  Sender: FDA-Public Use
  Company Number: PHHY2011TW75013

PATIENT
  Age: 46 Year
  Sex: Female

DRUGS (1)
  1. ZOLPIDEM [Suspect]
     Indication: ANXIETY DISORDER
     Dosage: 400 MG, UNK
     Route: 048

REACTIONS (7)
  - DELIRIUM [None]
  - HALLUCINATION [None]
  - DYSKINESIA [None]
  - DRUG WITHDRAWAL SYNDROME [None]
  - PSYCHOTIC DISORDER [None]
  - SINUS TACHYCARDIA [None]
  - CONVULSION [None]
